FAERS Safety Report 10939315 (Version 2)
Quarter: 2015Q2

REPORT INFORMATION
  Report Type: Spontaneous
  Country: US (occurrence: US)
  Receive Date: 20150322
  Receipt Date: 20150525
  Transmission Date: 20150821
  Serious: No
  Sender: FDA-Public Use
  Company Number: US-JNJFOC-20141006900

PATIENT
  Sex: Male
  Weight: 83.92 kg

DRUGS (1)
  1. NUCYNTA ER [Suspect]
     Active Substance: TAPENTADOL HYDROCHLORIDE
     Indication: PRODUCT USED FOR UNKNOWN INDICATION
     Route: 048
     Dates: start: 20120820, end: 2013

REACTIONS (2)
  - Dental caries [Unknown]
  - Loose tooth [Unknown]

NARRATIVE: CASE EVENT DATE: 2013
